FAERS Safety Report 8334726-4 (Version None)
Quarter: 2012Q2

REPORT INFORMATION
  Report Type: 
  Country: None (occurrence: None)
  Receive Date: 20120503
  Receipt Date: 20120426
  Transmission Date: 20120825
  Serious: Yes (Hospitalization, Other)
  Sender: FDA-Public Use
  Company Number: US-ABBOTT-12P-163-0929855-00

PATIENT
  Sex: Male

DRUGS (2)
  1. ZETIA [Suspect]
     Indication: BLOOD CHOLESTEROL INCREASED
     Dosage: 10 MG DAILY
     Dates: start: 20090101
  2. TRILIPIX [Suspect]
     Indication: BLOOD CHOLESTEROL INCREASED
     Dates: start: 20090101

REACTIONS (6)
  - PANCREATITIS [None]
  - DIABETES MELLITUS [None]
  - ABDOMINAL PAIN [None]
  - BILE DUCT OBSTRUCTION [None]
  - VOMITING [None]
  - PANCREATIC PSEUDOCYST [None]
